FAERS Safety Report 8256685-5 (Version None)
Quarter: 2012Q2

REPORT INFORMATION
  Report Type: 
  Country: None (occurrence: None)
  Receive Date: 20120403
  Receipt Date: 20120327
  Transmission Date: 20120825
  Serious: Yes (Other)
  Sender: FDA-Public Use
  Company Number: US-ASTRAZENECA-2010SE45015

PATIENT
  Age: 66 Year
  Sex: Female

DRUGS (6)
  1. PRILOSEC [Suspect]
     Route: 048
  2. NAPROXEN (ALEVE) [Concomitant]
  3. PREDNISONE TAB [Concomitant]
  4. PREVACID [Concomitant]
  5. NEXIUM [Suspect]
     Route: 048
  6. XANAX [Concomitant]

REACTIONS (14)
  - APHASIA [None]
  - MALAISE [None]
  - WHEEZING [None]
  - PAIN [None]
  - DISORIENTATION [None]
  - MYALGIA [None]
  - VOMITING [None]
  - CONVULSION [None]
  - APHAGIA [None]
  - GASTROOESOPHAGEAL REFLUX DISEASE [None]
  - INTENTIONAL DRUG MISUSE [None]
  - RENAL FAILURE ACUTE [None]
  - CHEST PAIN [None]
  - CHEST DISCOMFORT [None]
